FAERS Safety Report 20125709 (Version 2)
Quarter: 2021Q4

REPORT INFORMATION
  Report Type: Report from Study
  Country: NL (occurrence: NL)
  Receive Date: 20211129
  Receipt Date: 20211221
  Transmission Date: 20220303
  Serious: Yes (Hospitalization, Other)
  Sender: FDA-Public Use
  Company Number: NL-AMGEN-NLDSL2021187851

PATIENT
  Age: 55 Year
  Sex: Female

DRUGS (1)
  1. ARANESP [Suspect]
     Active Substance: DARBEPOETIN ALFA
     Indication: Anaemia of malignant disease
     Dosage: 500 MICROGRAM, Q3WK
     Route: 058

REACTIONS (3)
  - Constipation [Unknown]
  - Abdominal pain [Unknown]
  - Terminal state [Unknown]

NARRATIVE: CASE EVENT DATE: 20211121
